FAERS Safety Report 10500987 (Version 1)
Quarter: 2014Q4

REPORT INFORMATION
  Report Type: Spontaneous
  Country: US (occurrence: None)
  Receive Date: 20141006
  Receipt Date: 20141006
  Transmission Date: 20150528
  Serious: Yes (Hospitalization)
  Sender: FDA-Public Use
  Company Number: None

PATIENT
  Age: 64 Year
  Sex: Male
  Weight: 146.8 kg

DRUGS (3)
  1. SILVER SULFADIAZINE. [Suspect]
     Active Substance: SILVER SULFADIAZINE
     Indication: DERMATITIS
     Dosage: SMALL AMOUNT, BID, TOP
     Route: 061
     Dates: start: 20140401, end: 20140424
  2. SILVER SULFADIAZINE. [Suspect]
     Active Substance: SILVER SULFADIAZINE
     Indication: CELLULITIS
     Dosage: SMALL AMOUNT, BID, TOP
     Route: 061
     Dates: start: 20140401, end: 20140424
  3. SULFAMETHOXAZOLE/TRIMETHOPRIM [Suspect]
     Active Substance: SULFAMETHOXAZOLE\TRIMETHOPRIM
     Route: 048
     Dates: start: 20140417, end: 20140424

REACTIONS (4)
  - Scab [None]
  - Rash [None]
  - Swelling [None]
  - Erythema multiforme [None]

NARRATIVE: CASE EVENT DATE: 20140619
